FAERS Safety Report 9735731 (Version 1)
Quarter: 2013Q4

REPORT INFORMATION
  Report Type: Spontaneous
  Country: US (occurrence: None)
  Receive Date: 20131205
  Receipt Date: 20131205
  Transmission Date: 20140711
  Serious: Yes (Death)
  Sender: FDA-Public Use
  Company Number: None

PATIENT
  Age: 88 Year
  Sex: Male
  Weight: 75 kg

DRUGS (15)
  1. RITUXIMAB [Suspect]
     Indication: MANTLE CELL LYMPHOMA
     Route: 048
     Dates: start: 20131029, end: 20131105
  2. LENALIDOMIDE [Suspect]
     Indication: MANTLE CELL LYMPHOMA
     Route: 042
     Dates: start: 20131029, end: 20131108
  3. COUMADIN 5MG PO QD [Concomitant]
  4. PROTONIX 20MG PO QD, GERD [Concomitant]
  5. ALLOPURINOL 300MG PO QD, GOUT PROPHYLAXIS [Concomitant]
  6. VALTREX 500MG PO QD, SHINGLES PROPHYLAXIS [Concomitant]
  7. AMLODIPINE 5MG PO QD, HYPERTENSION [Concomitant]
  8. BACTRIM DS 800/160MG PO QD, INFECTION PROPHYLAXIS [Concomitant]
  9. MVI 1 TAB PO QD [Concomitant]
  10. DEXAMETHASONE 8MG IV [Concomitant]
  11. BENADRYL 50MG PO [Concomitant]
  12. ZOFRAN 8MG PO [Concomitant]
  13. TYLENOL 650MG PO [Concomitant]
  14. DEXAMETHASONE 8MG PO [Concomitant]
  15. BORTEZOMIB [Suspect]
     Indication: MANTLE CELL LYMPHOMA

REACTIONS (1)
  - Cardiac arrest [None]
